FAERS Safety Report 5535927-0 (Version None)
Quarter: 2007Q4

REPORT INFORMATION
  Report Type: 
  Country: None (occurrence: None)
  Receive Date: 20071206
  Receipt Date: 20071128
  Transmission Date: 20080405
  Serious: Yes (Other)
  Sender: FDA-Public Use
  Company Number: US-JNJFOC-20071102824

PATIENT
  Sex: Female

DRUGS (8)
  1. ORTHO EVRA [Suspect]
     Indication: MENSTRUATION IRREGULAR
  2. ORTHO EVRA [Suspect]
     Indication: CONTRACEPTION
  3. SOMA [Concomitant]
  4. OXYCONTIN [Concomitant]
  5. ZOLOFT [Concomitant]
  6. CLONIDINE [Concomitant]
  7. RESTORIL [Concomitant]
  8. NEURONTIN [Concomitant]

REACTIONS (19)
  - ACUTE RESPIRATORY DISTRESS SYNDROME [None]
  - ASCITES [None]
  - BREAST ENGORGEMENT [None]
  - BREAST TENDERNESS [None]
  - CANDIDIASIS [None]
  - DEEP VEIN THROMBOSIS [None]
  - HEPATOMEGALY [None]
  - HYPERCOAGULATION [None]
  - HYPOTENSION [None]
  - OFF LABEL USE [None]
  - PLEURAL EFFUSION [None]
  - PNEUMONIA [None]
  - POST PROCEDURAL COMPLICATION [None]
  - PULMONARY ALVEOLAR HAEMORRHAGE [None]
  - PULMONARY EMBOLISM [None]
  - RESPIRATORY DISTRESS [None]
  - SLEEP APNOEA SYNDROME [None]
  - SYNOVIAL CYST [None]
  - WEIGHT INCREASED [None]
